FAERS Safety Report 12386063 (Version 2)
Quarter: 2016Q3

REPORT INFORMATION
  Report Type: Spontaneous
  Country: PE (occurrence: PE)
  Receive Date: 20160519
  Receipt Date: 20160809
  Transmission Date: 20161109
  Serious: Yes (Other)
  Sender: FDA-Public Use
  Company Number: PE-PFIZER INC-2016261752

PATIENT
  Age: 69 Year
  Sex: Female

DRUGS (3)
  1. EFFEXOR XR [Suspect]
     Active Substance: VENLAFAXINE HYDROCHLORIDE
     Dosage: 150 MG, DAILY
  2. EFFEXOR XR [Suspect]
     Active Substance: VENLAFAXINE HYDROCHLORIDE
     Dosage: 75 MG, DAILY AT NIGHTS
  3. EFFEXOR XR [Suspect]
     Active Substance: VENLAFAXINE HYDROCHLORIDE
     Dosage: 2 DF (75MG), DAILY WHEN FEELS ANXIOUS AND DESPERATE

REACTIONS (4)
  - Anxiety [Unknown]
  - Neoplasm malignant [Unknown]
  - Feeling of despair [Unknown]
  - Intentional product use issue [Unknown]
